FAERS Safety Report 19662879 (Version 1)
Quarter: 2021Q3

REPORT INFORMATION
  Report Type: Spontaneous
  Country: PT (occurrence: PT)
  Receive Date: 20210805
  Receipt Date: 20210805
  Transmission Date: 20211014
  Serious: Yes (Other)
  Sender: FDA-Public Use
  Company Number: PT-EXELTIS PHARMACEUTICAL HOLDING, S.L.-2107PT00842

PATIENT
  Sex: Female

DRUGS (1)
  1. SLINDA [Suspect]
     Active Substance: DROSPIRENONE
     Indication: PRODUCT USED FOR UNKNOWN INDICATION
     Dosage: UNK

REACTIONS (1)
  - Embolism venous [Unknown]
